FAERS Safety Report 5772141-8 (Version None)
Quarter: 2008Q2

REPORT INFORMATION
  Report Type: 
  Country: None (occurrence: None)
  Receive Date: 20080613
  Receipt Date: 20080605
  Transmission Date: 20081010
  Serious: No
  Sender: FDA-Public Use
  Company Number: US-ROCHE-568819

PATIENT
  Age: 27 Year
  Sex: Female

DRUGS (1)
  1. ACCUTANE [Suspect]
     Indication: ACNE
     Dosage: ON THERAPY FOR 4-5 WEEKS
     Route: 065
     Dates: start: 20080501

REACTIONS (2)
  - NO ADVERSE EVENT [None]
  - PREGNANCY [None]
